FAERS Safety Report 6713530-4 (Version None)
Quarter: 2010Q2

REPORT INFORMATION
  Report Type: 
  Country: None (occurrence: None)
  Receive Date: 20100506
  Receipt Date: 20100428
  Transmission Date: 20101027
  Serious: Yes (Life-Threatening, Hospitalization)
  Sender: FDA-Public Use
  Company Number: GB-JNJFOC-20100104953

PATIENT
  Sex: Female
  Weight: 74.5 kg

DRUGS (9)
  1. STELARA [Suspect]
     Indication: PUSTULAR PSORIASIS
     Route: 058
     Dates: end: 20100213
  2. STELARA [Suspect]
     Route: 058
     Dates: end: 20100213
  3. FUROSEMIDE [Concomitant]
     Indication: OEDEMA PERIPHERAL
     Route: 065
  4. PROMETHAZINE [Concomitant]
     Indication: PRURITUS
     Route: 048
  5. PARACETAMOL [Concomitant]
     Indication: ANALGESIC THERAPY
     Route: 065
  6. METOLAZONE [Concomitant]
     Indication: OEDEMA PERIPHERAL
     Route: 048
  7. AMILORIDE HYDROCHLORIDE [Concomitant]
     Indication: OEDEMA PERIPHERAL
     Route: 065
  8. FERROUS SULFATE TAB [Concomitant]
     Indication: ANAEMIA
     Route: 065
  9. MIRTAZAPINE [Concomitant]
     Indication: DRUG USE FOR UNKNOWN INDICATION
     Route: 065

REACTIONS (3)
  - DERMATITIS EXFOLIATIVE [None]
  - OFF LABEL USE [None]
  - PUSTULAR PSORIASIS [None]
